FAERS Safety Report 4431352-4 (Version None)
Quarter: 2004Q3

REPORT INFORMATION
  Report Type: 
  Country: None (occurrence: None)
  Receive Date: 20040817
  Receipt Date: 20040803
  Transmission Date: 20050211
  Serious: Yes (Life-Threatening)
  Sender: FDA-Public Use
  Company Number: 2004227006GB

PATIENT
  Age: 16 Year
  Sex: Female
  Weight: 50 kg

DRUGS (1)
  1. PROSTIN E2 [Suspect]
     Indication: INDUCED LABOUR
     Dosage: 10 MG/ML INTRA-UTERINE
     Route: 015
     Dates: start: 20040712, end: 20040712

REACTIONS (4)
  - ANAPHYLACTIC REACTION [None]
  - COMA [None]
  - CYANOSIS [None]
  - PERIPHERAL CIRCULATORY FAILURE [None]
